FAERS Safety Report 26179043 (Version 1)
Quarter: 2025Q4

REPORT INFORMATION
  Report Type: Spontaneous
  Country: EU (occurrence: EU)
  Receive Date: 20251219
  Receipt Date: 20251219
  Transmission Date: 20260117
  Serious: Yes (Life-Threatening, Hospitalization, Other)
  Sender: RANBAXY
  Company Number: EU-MINISAL02-1057338

PATIENT
  Age: 71 Year
  Sex: Female

DRUGS (1)
  1. OXALIPLATIN [Suspect]
     Active Substance: OXALIPLATIN
     Indication: Adjuvant therapy
     Dosage: 130 MILLIGRAM/SQ. METER, UNK
     Route: 065
     Dates: start: 20250820, end: 20250910

REACTIONS (7)
  - Infusion related reaction [Recovering/Resolving]
  - Hypertension [Recovered/Resolved]
  - Hyperventilation [Recovered/Resolved]
  - Dysaesthesia pharynx [Recovered/Resolved]
  - Muscle spasms [Recovered/Resolved]
  - Neuropathy peripheral [Not Recovered/Not Resolved]
  - Dysaesthesia pharynx [Recovered/Resolved]

NARRATIVE: CASE EVENT DATE: 20250820
